FAERS Safety Report 7767594-X (Version None)
Quarter: 2011Q3

REPORT INFORMATION
  Report Type: 
  Country: None (occurrence: None)
  Receive Date: 20110922
  Receipt Date: 20110914
  Transmission Date: 20111222
  Serious: Yes (Hospitalization, Other)
  Sender: FDA-Public Use
  Company Number: PR-GENZYME-CAMP-1001602

PATIENT
  Age: 57 Year
  Sex: Female
  Weight: 53.061 kg

DRUGS (10)
  1. CAMPATH [Suspect]
     Dosage: 10 MG, UNK
     Route: 042
  2. ARZERRA [Suspect]
     Indication: CHRONIC LYMPHOCYTIC LEUKAEMIA
  3. SEPTRA DS [Concomitant]
     Indication: PRODUCT USED FOR UNKNOWN INDICATION
     Dosage: UNK, BID
     Route: 048
     Dates: start: 20110101, end: 20110601
  4. CAMPATH [Suspect]
     Indication: CHRONIC LYMPHOCYTIC LEUKAEMIA
     Dosage: 2 MG, UNK
     Route: 042
     Dates: start: 20110101
  5. CAMPATH [Suspect]
     Dosage: 30 MG, UNK
     Route: 042
  6. CAMPATH [Suspect]
     Dosage: UNK,  X12 WEEKS
     Route: 042
  7. FLUDARA [Suspect]
     Indication: CHRONIC LYMPHOCYTIC LEUKAEMIA
     Dosage: 40 MG, QDX3 EVERY 3 WEEKS X 6
     Route: 065
     Dates: start: 20090615, end: 20091206
  8. METFORMIN HCL [Concomitant]
     Indication: PRODUCT USED FOR UNKNOWN INDICATION
     Dosage: 500 MG, BID
     Route: 048
     Dates: start: 20091222
  9. CYCLOPHOSPHAMIDE [Suspect]
     Indication: CHRONIC LYMPHOCYTIC LEUKAEMIA
     Dosage: UNK
     Route: 065
  10. RITUXIMAB [Suspect]
     Indication: CHRONIC LYMPHOCYTIC LEUKAEMIA
     Dosage: UNK
     Route: 065

REACTIONS (2)
  - HYPONATRAEMIA [None]
  - DISEASE RECURRENCE [None]
